FAERS Safety Report 5119136-5 (Version None)
Quarter: 2006Q3

REPORT INFORMATION
  Report Type: 
  Country: None (occurrence: None)
  Receive Date: 20060929
  Receipt Date: 20060929
  Transmission Date: 20061208
  Serious: Yes (Disabling, Other)
  Sender: FDA-Public Use
  Company Number: None

PATIENT
  Age: 69 Year
  Sex: Male
  Weight: 79.8331 kg

DRUGS (12)
  1. METFORMIN HCL [Suspect]
     Indication: DIABETES MELLITUS
     Dosage: 500 MG BID PO
     Route: 048
     Dates: start: 20051115, end: 20051204
  2. ATIVAN [Concomitant]
  3. METRONIDAZOLE [Concomitant]
  4. COMPAZINE [Concomitant]
  5. CARBACHOL OPHTH SOLN [Concomitant]
  6. REGULAR INSULIN [Concomitant]
  7. COMBIVENT [Concomitant]
  8. LISINOPRIL [Concomitant]
  9. NIFEDIPINE [Concomitant]
  10. TIMOLOL OPHTH GEL [Concomitant]
  11. TRAVAPROST [Concomitant]
  12. VENLAFAXIINE HCL [Concomitant]

REACTIONS (5)
  - ANOREXIA [None]
  - HEPATOTOXICITY [None]
  - JAUNDICE [None]
  - NAUSEA [None]
  - VOMITING [None]
